FAERS Safety Report 6645561 (Version 2)
Quarter: 2014Q2

REPORT INFORMATION
  Report Type: Report from Study
  Country: CZ (occurrence: CZ)
  Receive Date: 20080521
  Receipt Date: 20140509
  Transmission Date: 20141212
  Serious: Yes (Life-Threatening)
  Sender: FDA-Public Use
  Company Number: CZ-ROCHE-563475

PATIENT
  Age: 71 Year
  Sex: Male
  Weight: 68 kg

DRUGS (9)
  1. CAPECITABINE [Suspect]
     Indication: COLON CANCER
     Dosage: CYCLE 3. TREATMENT INTERRUPTED.?FORM AND STRENGTH PER PROTOCOL. UNIT DOSE=3500 UNIT
     Route: 048
     Dates: start: 20080208, end: 20080403
  2. CAPECITABINE [Suspect]
     Route: 048
  3. BEVACIZUMAB [Suspect]
     Indication: COLON CANCER
     Dosage: CYCLE 3. TREATMENT INTERRUPTED.?FORM AND STRENGTH PER PROTOCOL. UNIT DOSE=510 UNIT
     Route: 042
     Dates: start: 20080208, end: 20080321
  4. BEVACIZUMAB [Suspect]
     Route: 042
  5. BETALOC [Concomitant]
     Indication: HYPERTENSION
     Route: 048
  6. GENERIC COMPONENT(S) NOT KNOWN [Concomitant]
     Indication: HYPERTENSION
     Dosage: DRUG REPORTED; COPTEN
     Route: 048
  7. VEROSPIRON [Concomitant]
     Indication: MYOCARDIAL ISCHAEMIA
     Route: 048
  8. GENERIC COMPONENT(S) NOT KNOWN [Concomitant]
     Indication: BENIGN PROSTATIC HYPERPLASIA
     Dosage: DRUG: TAFLOSIN
     Route: 048
  9. ANOPYRIN [Concomitant]
     Indication: MYOCARDIAL ISCHAEMIA
     Route: 048

REACTIONS (1)
  - Appendicitis [Recovered/Resolved]
